FAERS Safety Report 12888669 (Version 4)
Quarter: 2016Q4

REPORT INFORMATION
  Report Type: Spontaneous
  Country: US (occurrence: US)
  Receive Date: 20161027
  Receipt Date: 20161230
  Transmission Date: 20170207
  Serious: Yes (Hospitalization, Other)
  Sender: FDA-Public Use
  Company Number: US-PFIZER INC-2016496953

PATIENT
  Age: 70 Year
  Sex: Female
  Weight: 60 kg

DRUGS (15)
  1. SUTENT [Suspect]
     Active Substance: SUNITINIB MALATE
     Indication: RENAL CELL CARCINOMA
     Dosage: 50 MG, CYCLIC [1 CAPSULE BY MOUTH DAILY FOR 14 DAYS THEN HOLD FOR 7 DAYS BEFORE REPEATING]
     Route: 048
     Dates: start: 20161014
  2. NEURONTIN [Concomitant]
     Active Substance: GABAPENTIN
     Dosage: 300 MG, DAILY [100 MG IN THE MORNING, 200 MG AT NIGHT]
  3. VITAMIN C [Concomitant]
     Active Substance: ASCORBIC ACID
     Dosage: 500 MG, DAILY
     Route: 048
  4. SUTENT [Suspect]
     Active Substance: SUNITINIB MALATE
     Dosage: 50 MG, CYCLIC [2 WEEKS ON/1 WEEK OFF]
  5. SUTENT [Suspect]
     Active Substance: SUNITINIB MALATE
     Dosage: 50 MG, CYCLIC [DAILY, 2 WEEKS ON/1 WEEK OFF]
     Route: 048
     Dates: start: 20161017, end: 20161020
  6. SUTENT [Suspect]
     Active Substance: SUNITINIB MALATE
     Indication: METASTASES TO KIDNEY
     Dosage: 37.5 MG, CYCLIC [1 DAILY FOR 14 DAYS HOLD 7 DAYS + REPEAT]
  7. SUTENT [Suspect]
     Active Substance: SUNITINIB MALATE
     Dosage: 37.5 MG, CYCLIC (2 WEEKS ON/1 WEEK OFF)
     Dates: start: 20161216
  8. DELTASONE [Concomitant]
     Active Substance: PREDNISONE
     Indication: NEUROPATHY PERIPHERAL
     Dosage: 10 MG, DAILY [FOR ONE WEEK]
  9. PROTONIX [Concomitant]
     Active Substance: PANTOPRAZOLE SODIUM
     Dosage: 40 MG, 1X/DAY [EVERY MORNING BEFORE BREAKFAST]
     Route: 048
     Dates: start: 20161031
  10. SUTENT [Suspect]
     Active Substance: SUNITINIB MALATE
     Dosage: 37.5 MG
  11. GABAPENTIN. [Concomitant]
     Active Substance: GABAPENTIN
     Dosage: 300 MG, UNK
  12. HYDROCODONE/ACETAMINOPHEN [Concomitant]
     Active Substance: ACETAMINOPHEN\HYDROCODONE
     Dosage: UNK (HYDROCODONE: 5MG/ PARACETAMOL: 325 MG)
  13. DELTASONE [Concomitant]
     Active Substance: PREDNISONE
     Dosage: 20 MG, DAILY
  14. LEVAQUIN [Concomitant]
     Active Substance: LEVOFLOXACIN
     Indication: PNEUMONIA BACTERIAL
     Dosage: 750 MG, DAILY [FOR 5 DAYS]
     Route: 048
     Dates: start: 20161031, end: 20161105
  15. ZOFRAN [Concomitant]
     Active Substance: ONDANSETRON HYDROCHLORIDE
     Indication: NAUSEA
     Dosage: 4 MG, AS NEEDED [EVERY 8 (EIGHT) HOURS AS NEEDED]
     Dates: start: 20161025, end: 20161101

REACTIONS (17)
  - Nausea [Unknown]
  - Therapeutic response unexpected [Unknown]
  - Thrombocytopenia [Recovered/Resolved]
  - Malaise [Recovering/Resolving]
  - Abnormal faeces [Unknown]
  - Blood bilirubin increased [Recovering/Resolving]
  - Pain [Unknown]
  - Condition aggravated [Unknown]
  - Headache [Not Recovered/Not Resolved]
  - Abdominal pain [Unknown]
  - Platelet count decreased [Recovering/Resolving]
  - Retching [Unknown]
  - Jaundice [Unknown]
  - Pyrexia [Recovered/Resolved]
  - Diarrhoea [Recovered/Resolved]
  - Eye haemorrhage [Unknown]
  - Dehydration [Recovering/Resolving]

NARRATIVE: CASE EVENT DATE: 20161021
